FAERS Safety Report 4786236-9 (Version None)
Quarter: 2005Q3

REPORT INFORMATION
  Report Type: 
  Country: None (occurrence: None)
  Receive Date: 20050926
  Receipt Date: 20041025
  Transmission Date: 20060218
  Serious: Yes (Hospitalization, Other)
  Sender: FDA-Public Use
  Company Number: 2004081029

PATIENT
  Sex: Male

DRUGS (3)
  1. NARDIL [Suspect]
     Indication: ANXIETY
     Dosage: 30 MG (15 MG, 2 IN 1 D), ORAL
     Route: 048
     Dates: start: 19730101, end: 20031101
  2. NARDIL [Suspect]
     Indication: DEPRESSION
     Dosage: 30 MG (15 MG, 2 IN 1 D), ORAL
     Route: 048
     Dates: start: 19730101, end: 20031101
  3. PEMIROLAST POTASSIUM [Concomitant]

REACTIONS (1)
  - DRUG INEFFECTIVE [None]
